FAERS Safety Report 8524313-7 (Version None)
Quarter: 2012Q3

REPORT INFORMATION
  Report Type: 
  Country: None (occurrence: None)
  Receive Date: 20120720
  Receipt Date: 20120716
  Transmission Date: 20120928
  Serious: Yes (Other)
  Sender: FDA-Public Use
  Company Number: AR-PFIZER INC-2012166511

PATIENT
  Age: 75 Year
  Sex: Male

DRUGS (5)
  1. RIFAMPICIN [Suspect]
     Indication: SKIN LESION
     Dosage: 600 MG, THE FIRST DAY OF EACH MONTH
     Route: 048
  2. CLOFAZIMINE [Suspect]
     Indication: SKIN LESION
     Dosage: 300 MG, THE FIRST DAY OF EACH MONTH
     Route: 048
  3. DAPSONE [Suspect]
     Dosage: 100 MG, EVERY OTHER DAY FOR TWELVE MONTHS
     Route: 048
  4. DAPSONE [Suspect]
     Indication: SKIN LESION
     Dosage: 100 MG, THE FIRST DAY OF EACH MONTH
     Route: 048
  5. CLOFAZIMINE [Suspect]
     Dosage: 50 MG, EVERY OTHER DAY FOR TWELVE MONTHS
     Route: 048

REACTIONS (3)
  - SKIN LESION [None]
  - NEURITIS [None]
  - HYPERAESTHESIA [None]
